FAERS Safety Report 15429589 (Version 1)
Quarter: 2018Q3

REPORT INFORMATION
  Report Type: Spontaneous
  Country: US (occurrence: US)
  Receive Date: 20180920
  Receipt Date: 20180920
  Transmission Date: 20181010
  Serious: No
  Sender: FDA-Public Use
  Company Number: None

PATIENT
  Sex: Female
  Weight: 97 kg

DRUGS (6)
  1. BUPROPRION (XL) 450 MG [Concomitant]
     Dates: start: 20160914
  2. DESVENLAFAXINE 50 MG [Concomitant]
     Active Substance: DESVENLAFAXINE
     Dates: start: 20170301
  3. MAG?OX 400 MG [Concomitant]
     Dates: start: 20180205
  4. TOPIRAMATE 100 MG [Concomitant]
     Active Substance: TOPIRAMATE
     Dates: start: 20110926
  5. ZOLPIDEM [Concomitant]
     Active Substance: ZOLPIDEM\ZOLPIDEM TARTRATE
     Dates: start: 20170726
  6. XIIDRA [Suspect]
     Active Substance: LIFITEGRAST
     Indication: DRY EYE
     Route: 047
     Dates: start: 20180523, end: 20180710

REACTIONS (2)
  - Therapy cessation [None]
  - Headache [None]
